FAERS Safety Report 9944233 (Version 1)
Quarter: 2014Q1

REPORT INFORMATION
  Report Type: Report from Study
  Country: US (occurrence: US)
  Receive Date: 20140303
  Receipt Date: 20140303
  Transmission Date: 20141002
  Serious: No
  Sender: FDA-Public Use
  Company Number: US-ABBVIE-13P-163-1050095-00

PATIENT
  Age: 56 Year
  Sex: Female

DRUGS (12)
  1. HUMIRA [Suspect]
     Indication: COLITIS ULCERATIVE
     Dates: start: 20121130
  2. OXYCODONE [Concomitant]
     Dosage: FOUR TIMES A DAY AS NEEDED
  3. ZANAFLEX [Concomitant]
     Indication: MUSCLE RELAXANT THERAPY
     Dosage: 1-2 TABLETS THREE TIMES A DAY
  4. DOXEPIN [Concomitant]
     Indication: INSOMNIA
     Dosage: AT BEDTIME
  5. SIMVASTATIN [Concomitant]
     Indication: BLOOD CHOLESTEROL
     Dosage: AT BEDTIME
  6. METOPROLOL [Concomitant]
     Indication: BLOOD PRESSURE
  7. DIOVAN [Concomitant]
     Indication: BLOOD PRESSURE
     Dosage: 80 MG DAILY
  8. LEVOTHYROXINE [Concomitant]
     Indication: HYPOTHYROIDISM
     Dosage: 50 MCG DAILY
  9. AMLODIPINE [Concomitant]
     Indication: BLOOD PRESSURE
     Dosage: 5 MG DAILY
  10. LIALDA [Concomitant]
     Indication: COLITIS ULCERATIVE
  11. ASPIRIN [Concomitant]
     Indication: CARDIOVASCULAR EVENT PROPHYLAXIS
     Dosage: 81 MG DAILY
  12. PANTOPRAZOLE [Concomitant]
     Indication: GASTROOESOPHAGEAL REFLUX DISEASE
     Dates: start: 20130211

REACTIONS (1)
  - Injection site pain [Unknown]
